FAERS Safety Report 21203646 (Version 1)
Quarter: 2022Q3

REPORT INFORMATION
  Report Type: Report from Study
  Country: US (occurrence: US)
  Receive Date: 20220811
  Receipt Date: 20220811
  Transmission Date: 20221027
  Serious: No
  Sender: FDA-Public Use
  Company Number: US-NOVARTISTESTPH-NVSC2022US181334

PATIENT
  Age: 55 Year
  Sex: Male

DRUGS (2)
  1. KESIMPTA [Suspect]
     Active Substance: OFATUMUMAB
     Indication: Multiple sclerosis
     Dosage: 20 MG (EVERY 28 DAYS)
     Route: 058
     Dates: start: 20220223
  2. IMMUNE GLOBULIN NOS [Concomitant]
     Active Substance: IMMUNE GLOBULIN NOS
     Indication: Leukaemia
     Dosage: UNK
     Route: 042
     Dates: start: 20220729

REACTIONS (3)
  - Injection site bruising [Not Recovered/Not Resolved]
  - Product dose omission in error [Unknown]
  - Product storage error [Unknown]

NARRATIVE: CASE EVENT DATE: 20220729
